FAERS Safety Report 8465075-1 (Version None)
Quarter: 2012Q2

REPORT INFORMATION
  Report Type: 
  Country: None (occurrence: None)
  Receive Date: 20120626
  Receipt Date: 20120619
  Transmission Date: 20120825
  Serious: Yes (Hospitalization)
  Sender: FDA-Public Use
  Company Number: US-ASTRAZENECA-2011SE76007

PATIENT
  Age: 49 Year
  Sex: Female
  Weight: 82.6 kg

DRUGS (19)
  1. CYMBALTA [Concomitant]
     Route: 048
     Dates: end: 20100301
  2. ESTRADIOL NORETHINDRONE [Concomitant]
     Dosage: 1.0 TO 0.5 MG ONE PO QD
     Route: 048
     Dates: start: 20100210
  3. CELEXA [Concomitant]
     Route: 048
     Dates: start: 20100210
  4. MEDROL [Concomitant]
     Dates: start: 20100128, end: 20100301
  5. ZOLOFT [Concomitant]
     Route: 048
     Dates: start: 20090416, end: 20100301
  6. NAPROSYN SODIUM [Concomitant]
     Dosage: 550 MG ONE PO BID PRN WITH FOOD 7 TO 10 D AS NEEDED
     Route: 048
     Dates: start: 20090804, end: 20100301
  7. BUTAL/APAP/CAFF PLUS [Concomitant]
     Dates: start: 20041117
  8. ROBAXIN [Concomitant]
     Indication: MUSCLE SPASMS
     Dosage: 750 MG TABLET 1 PO TID PRN
     Route: 048
     Dates: start: 20090306, end: 20100301
  9. NEXIUM [Suspect]
     Route: 048
     Dates: start: 20020305
  10. CALCIUM CARBONATE [Concomitant]
     Dosage: 600 WITH D 600MG-200 U TABLET ONE PO BID
     Route: 048
     Dates: start: 20100210
  11. LORTAB [Concomitant]
     Indication: PAIN
     Dosage: 500 TO 10 MG, ONE PO Q8H PRN
     Route: 048
     Dates: start: 20091119, end: 20100301
  12. NAPROSYN SODIUM [Concomitant]
     Dates: start: 20020321
  13. KLONOPIN [Concomitant]
     Indication: ANXIETY
     Dosage: 1 TO HALF PO BID/PRN
     Route: 048
     Dates: start: 20091008
  14. OMEPRAZOLE [Concomitant]
     Route: 048
     Dates: start: 20090416, end: 20100301
  15. LEXAPRO [Concomitant]
     Route: 048
     Dates: start: 20091217, end: 20100301
  16. NEXIUM [Suspect]
     Indication: GASTROOESOPHAGEAL REFLUX DISEASE
     Route: 048
     Dates: start: 20020101
  17. FISH OIL [Concomitant]
     Route: 048
     Dates: start: 20100210
  18. GUAIFENESIN LA [Concomitant]
     Dates: start: 20010306
  19. FLEXERIL [Concomitant]
     Indication: PAIN
     Route: 048
     Dates: start: 20100210

REACTIONS (6)
  - BONE DENSITY DECREASED [None]
  - PAIN [None]
  - STRESS FRACTURE [None]
  - HIP FRACTURE [None]
  - RIB FRACTURE [None]
  - OSTEOPENIA [None]
